FAERS Safety Report 5820186-1 (Version None)
Quarter: 2008Q3

REPORT INFORMATION
  Report Type: 
  Country: None (occurrence: None)
  Receive Date: 20080724
  Receipt Date: 20080716
  Transmission Date: 20090109
  Serious: Yes (Other)
  Sender: FDA-Public Use
  Company Number: PHEH2008US06412

PATIENT
  Sex: Male

DRUGS (2)
  1. TEKTURNA [Suspect]
     Indication: HYPERTENSION
     Dosage: 150 MG, QD
     Route: 048
     Dates: start: 20080101, end: 20080705
  2. TEKTURNA [Suspect]
     Dosage: 300 MG, QD
     Route: 048
     Dates: start: 20080706

REACTIONS (2)
  - HYPERTHYROIDISM [None]
  - TACHYCARDIA [None]
